FAERS Safety Report 23064661 (Version 1)
Quarter: 2023Q4

REPORT INFORMATION
  Report Type: Spontaneous
  Country: US (occurrence: None)
  Receive Date: 20231013
  Receipt Date: 20231013
  Transmission Date: 20240109
  Serious: Yes (Life-Threatening, Disabling)
  Sender: FDA-Public Use
  Company Number: None

PATIENT
  Age: 36 Year
  Sex: Female
  Weight: 99 kg

DRUGS (4)
  1. SEMAGLUTIDE [Suspect]
     Active Substance: SEMAGLUTIDE
     Indication: Weight decreased
     Dates: start: 20230922, end: 20231013
  2. LEVOTHYROXINE [Concomitant]
     Active Substance: LEVOTHYROXINE
  3. XANAX [Concomitant]
     Active Substance: ALPRAZOLAM
  4. IUD- Hormones [Concomitant]

REACTIONS (5)
  - Anxiety [None]
  - Depression [None]
  - Decreased appetite [None]
  - Feeling abnormal [None]
  - Suicidal ideation [None]

NARRATIVE: CASE EVENT DATE: 20231002
